FAERS Safety Report 9287674 (Version 1)
Quarter: 2013Q2

REPORT INFORMATION
  Report Type: Report from Study
  Country: NL (occurrence: NL)
  Receive Date: 20130514
  Receipt Date: 20130514
  Transmission Date: 20140414
  Serious: Yes (Death)
  Sender: FDA-Public Use
  Company Number: PHHY2013NL047340

PATIENT
  Age: 88 Year
  Sex: Male

DRUGS (2)
  1. ZOMETA [Suspect]
     Indication: PROSTATE CANCER METASTATIC
     Dosage: 4 MG PER 100 ML ONCE PER 28 DAYS
     Route: 042
  2. ZOMETA [Suspect]
     Dosage: 4 MG PER 100 ML ONCE PER 28 DAYS
     Route: 042
     Dates: start: 20130418

REACTIONS (1)
  - Death [Fatal]
